FAERS Safety Report 22335420 (Version 1)
Quarter: 2023Q2

REPORT INFORMATION
  Report Type: Spontaneous
  Country: GB (occurrence: GB)
  Receive Date: 20230518
  Receipt Date: 20230518
  Transmission Date: 20230722
  Serious: Yes (Other)
  Sender: FDA-Public Use
  Company Number: GB-MHRA-MED-202305091518412360-NWDPH

PATIENT
  Age: 29 Year
  Sex: Female

DRUGS (1)
  1. FLUCONAZOLE [Suspect]
     Active Substance: FLUCONAZOLE
     Indication: Vulvovaginal candidiasis
     Dosage: 150MG ORAL STAT; DURATION : 1 DAY
     Route: 048
     Dates: start: 20230426, end: 20230426

REACTIONS (3)
  - Rash [Recovered/Resolved]
  - Blister [Unknown]
  - Gingival blister [Unknown]

NARRATIVE: CASE EVENT DATE: 20230426
